FAERS Safety Report 9804235 (Version 1)
Quarter: 2014Q1

REPORT INFORMATION
  Report Type: Spontaneous
  Country: DE (occurrence: None)
  Receive Date: 20140103
  Receipt Date: 20140103
  Transmission Date: 20141002
  Serious: Yes (Hospitalization, Other)
  Sender: FDA-Public Use
  Company Number: VAL_02885_2013

PATIENT
  Age: 61 Year
  Sex: Male

DRUGS (10)
  1. METOPROLOL (METOPROLOL-METOPROLOL TARTRATE) [Suspect]
     Indication: PRODUCT USED FOR UNKNOWN INDICATION
  2. DOXAZOSIN (DOXAZOSIN) [Suspect]
     Indication: HYPERTENSION
     Route: 048
  3. TELMISARTAN (TELMISARTAN) [Suspect]
     Indication: HYPERTENSION
     Route: 048
  4. RAD001ADE34T (CODE NOT BROKEN) [Suspect]
     Indication: HEART TRANSPLANT
     Route: 048
     Dates: start: 20121107
  5. CICLOSPORIN [Concomitant]
  6. EVEROLIMUS [Concomitant]
  7. PREDNISOLONE [Concomitant]
  8. ALLOPURINOL [Concomitant]
  9. NITRENDIPINE [Concomitant]
  10. FLUVASTATIN [Concomitant]

REACTIONS (2)
  - Vertigo [None]
  - Nausea [None]
